FAERS Safety Report 26184403 (Version 1)
Quarter: 2025Q4

REPORT INFORMATION
  Report Type: Spontaneous
  Country: GB (occurrence: None)
  Receive Date: 20251222
  Receipt Date: 20251222
  Transmission Date: 20260118
  Serious: Yes (Other)
  Sender: DEXCEL LTD.
  Company Number: None

PATIENT
  Sex: Female

DRUGS (3)
  1. ACETIC ACID\DEXAMETHASONE\NEOMYCIN SULFATE [Suspect]
     Active Substance: ACETIC ACID\DEXAMETHASONE\NEOMYCIN SULFATE
  2. ACETIC ACID\DEXAMETHASONE\NEOMYCIN SULFATE [Suspect]
     Active Substance: ACETIC ACID\DEXAMETHASONE\NEOMYCIN SULFATE
  3. ACETIC ACID\DEXAMETHASONE\NEOMYCIN SULFATE [Suspect]
     Active Substance: ACETIC ACID\DEXAMETHASONE\NEOMYCIN SULFATE

REACTIONS (1)
  - Deafness [Not Recovered/Not Resolved]

NARRATIVE: CASE EVENT DATE: 20251116
